FAERS Safety Report 18389829 (Version 3)
Quarter: 2020Q4

REPORT INFORMATION
  Report Type: Report from Study
  Country: US (occurrence: US)
  Receive Date: 20201015
  Receipt Date: 20201109
  Transmission Date: 20210114
  Serious: No
  Sender: FDA-Public Use
  Company Number: US-ALLERGAN-2039170US

PATIENT
  Sex: Male

DRUGS (2)
  1. AMITRIPTYLINE [Concomitant]
     Active Substance: AMITRIPTYLINE
     Dosage: UNK
     Route: 048
  2. CARIPRAZINE HCL 3MG CAP (TBD) [Suspect]
     Active Substance: CARIPRAZINE HYDROCHLORIDE
     Indication: HALLUCINATION
     Dosage: 3 MG, QD
     Route: 048
     Dates: start: 2017

REACTIONS (2)
  - Inappropriate schedule of product administration [Unknown]
  - Off label use [Unknown]
